FAERS Safety Report 8932951 (Version 3)
Quarter: 2013Q1

REPORT INFORMATION
  Report Type: Report from Study
  Country: FR (occurrence: FR)
  Receive Date: 20121128
  Receipt Date: 20130110
  Transmission Date: 20140127
  Serious: Yes (Hospitalization)
  Sender: FDA-Public Use
  Company Number: FR-ROCHE-1159925

PATIENT
  Age: 58 Year
  Sex: Female
  Weight: 47 kg

DRUGS (25)
  1. METHOXY POLYETHYLENE GLYCOL-EPOETIN BETA [Suspect]
     Indication: NEPHROGENIC ANAEMIA
     Dosage: DATE OF LAST DOSE PRIOR TO SAE 12/NOV/2012
     Route: 042
     Dates: start: 20100604
  2. METHOXY POLYETHYLENE GLYCOL-EPOETIN BETA [Suspect]
     Route: 042
     Dates: start: 20121112
  3. CALCIUM [Concomitant]
     Route: 065
     Dates: start: 20120111
  4. EMLA PATCH [Concomitant]
     Route: 065
     Dates: start: 20080111
  5. ESTRADIOL [Concomitant]
     Route: 065
     Dates: start: 20050117
  6. ESOMEPRAZOLE [Concomitant]
     Route: 065
     Dates: start: 20070820
  7. LEVOTHYROXINE [Concomitant]
     Route: 065
     Dates: start: 20090415
  8. ATORVASTATIN [Concomitant]
     Route: 065
     Dates: start: 20080111
  9. ACID FOLIC [Concomitant]
     Route: 065
     Dates: start: 20111012
  10. FLUINDIONE [Concomitant]
     Route: 065
     Dates: start: 20111019
  11. COLECALCIFEROL [Concomitant]
     Route: 065
     Dates: start: 20120106
  12. RENVELA [Concomitant]
     Route: 065
     Dates: start: 20120803, end: 20121017
  13. FERRIC HYDROXIDE [Concomitant]
     Route: 065
     Dates: start: 20121011
  14. LEVOCARNIL [Concomitant]
     Route: 065
     Dates: start: 20110311
  15. LOVENOX [Concomitant]
     Route: 065
     Dates: start: 20120411
  16. DICLOFENAC [Concomitant]
     Route: 065
     Dates: start: 20121019
  17. PARACETAMOL [Concomitant]
     Route: 065
     Dates: start: 20111010
  18. ZOPIDONE [Concomitant]
     Route: 065
     Dates: start: 20120606
  19. LATANOPROST [Concomitant]
     Route: 065
     Dates: start: 20120201
  20. KARDEGIC [Concomitant]
     Route: 065
     Dates: start: 20120402
  21. KARDEGIC [Concomitant]
     Route: 065
     Dates: start: 201211, end: 201211
  22. URAPIDIL [Concomitant]
     Route: 065
     Dates: start: 20120425
  23. BISOPROLOL [Concomitant]
     Route: 065
     Dates: start: 20120425
  24. DOMPERIDONE [Concomitant]
     Route: 065
     Dates: start: 20120827
  25. POLARAMINE [Concomitant]
     Route: 065
     Dates: start: 20120608

REACTIONS (2)
  - Transient ischaemic attack [Recovered/Resolved]
  - Arteriovenous fistula site complication [Recovered/Resolved]
